FAERS Safety Report 21356805 (Version 1)
Quarter: 2022Q3

REPORT INFORMATION
  Report Type: Spontaneous
  Country: US (occurrence: US)
  Receive Date: 20220920
  Receipt Date: 20220920
  Transmission Date: 20221026
  Serious: No
  Sender: FDA-Public Use
  Company Number: US-BAUSCHBL-2022BNL000434

PATIENT
  Age: 83 Year
  Sex: Male

DRUGS (1)
  1. BACITRACIN ZINC AND POLYMYXIN B SULFATE [Suspect]
     Active Substance: BACITRACIN ZINC\POLYMYXIN B SULFATE
     Indication: Postoperative care
     Dosage: THREE TIMES DAILY FOR 7 DAYS POST SURGERY.
     Route: 065

REACTIONS (1)
  - Application site hypersensitivity [Recovered/Resolved]
